FAERS Safety Report 19252626 (Version 1)
Quarter: 2021Q2

REPORT INFORMATION
  Report Type: Spontaneous
  Country: US (occurrence: US)
  Receive Date: 20210512
  Receipt Date: 20210512
  Transmission Date: 20210717
  Serious: Yes (Hospitalization)
  Sender: FDA-Public Use
  Company Number: None

PATIENT
  Age: 56 Year
  Sex: Male
  Weight: 85.5 kg

DRUGS (17)
  1. RUCAPARIB [Suspect]
     Active Substance: RUCAPARIB
     Indication: PROSTATE CANCER METASTATIC
     Route: 048
     Dates: start: 20200506, end: 20210413
  2. TERAZOSIN [Concomitant]
     Active Substance: TERAZOSIN HYDROCHLORIDE
  3. LEUPROLIDE [Concomitant]
     Active Substance: LEUPROLIDE
  4. MAGIC MOUTHWASH [Concomitant]
     Active Substance: DIPHENHYDRAMINE HYDROCHLORIDE\LIDOCAINE HYDROCHLORIDE\NYSTATIN
  5. METFORMIN [Concomitant]
     Active Substance: METFORMIN HYDROCHLORIDE
  6. GLIPIZIDE. [Concomitant]
     Active Substance: GLIPIZIDE
  7. ZOLEDRONIC ACID [Concomitant]
     Active Substance: ZOLEDRONIC ACID
  8. TRAZODINE [Concomitant]
  9. MELATONIN [Concomitant]
     Active Substance: MELATONIN
  10. LOSARTAN. [Concomitant]
     Active Substance: LOSARTAN
  11. AMLODIPINE [Concomitant]
     Active Substance: AMLODIPINE BESYLATE
  12. NOVOLIN R [Concomitant]
     Active Substance: INSULIN HUMAN
  13. ALLOPURINOL. [Concomitant]
     Active Substance: ALLOPURINOL
  14. LANTUS [Concomitant]
     Active Substance: INSULIN GLARGINE
  15. HYDROCHLOROTHIAZIDE. [Concomitant]
     Active Substance: HYDROCHLOROTHIAZIDE
  16. COPANLISIB. [Suspect]
     Active Substance: COPANLISIB
     Indication: PROSTATE CANCER METASTATIC
     Route: 042
     Dates: start: 20200506, end: 20210331
  17. POTASSIUM CHLORIDE. [Concomitant]
     Active Substance: POTASSIUM CHLORIDE

REACTIONS (4)
  - Bladder mass [None]
  - Therapy interrupted [None]
  - Thrombosis [None]
  - Haematuria [None]

NARRATIVE: CASE EVENT DATE: 20210414
